FAERS Safety Report 16123472 (Version 1)
Quarter: 2019Q1

REPORT INFORMATION
  Report Type: Report from Study
  Country: US (occurrence: US)
  Receive Date: 20190327
  Receipt Date: 20190327
  Transmission Date: 20190418
  Serious: Yes (Hospitalization, Other)
  Sender: FDA-Public Use
  Company Number: US-GILEAD-2019-0398582

PATIENT
  Age: 44 Year
  Sex: Male

DRUGS (1)
  1. LEDIPASVIR/SOFOSBUVIR [Suspect]
     Active Substance: LEDIPASVIR\SOFOSBUVIR
     Indication: CHRONIC HEPATITIS C
     Dosage: 1 TAB BY MOUTH DAILY
     Route: 048
     Dates: start: 20190116

REACTIONS (3)
  - Product use issue [Unknown]
  - Intentional product use issue [Unknown]
  - Liver operation [Unknown]

NARRATIVE: CASE EVENT DATE: 20190213
